FAERS Safety Report 7747567-3 (Version None)
Quarter: 2011Q3

REPORT INFORMATION
  Report Type: 
  Country: None (occurrence: None)
  Receive Date: 20110913
  Receipt Date: 20110831
  Transmission Date: 20111222
  Serious: Yes (Congenital Anomaly)
  Sender: FDA-Public Use
  Company Number: CH-ELI_LILLY_AND_COMPANY-CH201109000316

PATIENT

DRUGS (1)
  1. ZYPREXA [Suspect]
     Route: 050

REACTIONS (2)
  - MATERNAL EXPOSURE DURING PREGNANCY [None]
  - PHIMOSIS [None]
